FAERS Safety Report 6427810-3 (Version None)
Quarter: 2009Q4

REPORT INFORMATION
  Report Type: 
  Country: None (occurrence: None)
  Receive Date: 20091105
  Receipt Date: 20091030
  Transmission Date: 20100525
  Serious: Yes (Hospitalization)
  Sender: FDA-Public Use
  Company Number: IT-WYE-G04756809

PATIENT
  Sex: Female

DRUGS (4)
  1. EFFEXOR [Suspect]
     Indication: DEPRESSION
     Route: 048
     Dates: start: 20090101, end: 20091008
  2. DELORAZEPAM [Concomitant]
     Dosage: NOT REPORTED
     Route: 048
  3. IRBESARTAN [Concomitant]
     Dosage: NOT REPORTED
  4. TENORETIC 100 [Suspect]
     Indication: HYPERTENSION
     Route: 048
     Dates: start: 20090101, end: 20091008

REACTIONS (4)
  - APATHY [None]
  - HYPOKALAEMIA [None]
  - HYPONATRAEMIA [None]
  - SOPOR [None]
